FAERS Safety Report 21334973 (Version 1)
Quarter: 2022Q3

REPORT INFORMATION
  Report Type: Spontaneous
  Country: US (occurrence: None)
  Receive Date: 20220914
  Receipt Date: 20220914
  Transmission Date: 20221027
  Serious: No
  Sender: FDA-Public Use
  Company Number: None

PATIENT
  Age: 62 Year
  Sex: Male
  Weight: 99.93 kg

DRUGS (3)
  1. INLYTA [Suspect]
     Active Substance: AXITINIB
     Indication: Renal cancer
     Dosage: 5MG TWICE DAILY ORAL??ON HOLD
     Route: 048
     Dates: start: 202207
  2. PEMBROLIZUMAB [Suspect]
     Active Substance: PEMBROLIZUMAB
  3. CANNABIDIOL\HERBALS [Concomitant]
     Active Substance: CANNABIDIOL\HERBALS

REACTIONS (2)
  - Autoimmune hepatitis [None]
  - Therapy interrupted [None]
